FAERS Safety Report 5859399-1 (Version None)
Quarter: 2008Q3

REPORT INFORMATION
  Report Type: 
  Country: None (occurrence: None)
  Receive Date: 20080826
  Receipt Date: 20080826
  Transmission Date: 20090109
  Serious: Yes (Other)
  Sender: FDA-Public Use
  Company Number: None

PATIENT
  Age: 50 Year
  Sex: Male
  Weight: 97.5234 kg

DRUGS (2)
  1. DIAZEPAM 5 MG MYLAN 345 [Suspect]
     Indication: ANXIETY
     Dosage: 5 MG 4 X A DAY PO
     Route: 048
     Dates: start: 20040301, end: 20080825
  2. DIAZEPAM 5 MG MYLAN 345 [Suspect]
     Indication: MUSCLE RELAXANT THERAPY
     Dosage: 5 MG 4 X A DAY PO
     Route: 048
     Dates: start: 20040301, end: 20080825

REACTIONS (2)
  - HEADACHE [None]
  - PHARMACEUTICAL PRODUCT COMPLAINT [None]
